FAERS Safety Report 6595657-3 (Version None)
Quarter: 2010Q1

REPORT INFORMATION
  Report Type: 
  Country: None (occurrence: None)
  Receive Date: 20100222
  Receipt Date: 20100222
  Transmission Date: 20100710
  Serious: Yes (Hospitalization)
  Sender: FDA-Public Use
  Company Number: None

PATIENT
  Age: 3 Year
  Sex: Male
  Weight: 18.7 kg

DRUGS (3)
  1. PEGASPARAGINASE 150IUML ENZON [Suspect]
     Indication: ACUTE LYMPHOCYTIC LEUKAEMIA
     Dosage: 1925 IU X 1 IM
     Route: 042
     Dates: start: 20100114
  2. VINCRISTINE [Concomitant]
  3. METHOTREXATE [Concomitant]

REACTIONS (1)
  - ANAPHYLACTIC REACTION [None]
